FAERS Safety Report 21463905 (Version 1)
Quarter: 2022Q4

REPORT INFORMATION
  Report Type: Report from Study
  Country: US (occurrence: US)
  Receive Date: 20221017
  Receipt Date: 20221017
  Transmission Date: 20230113
  Serious: Yes (Hospitalization)
  Sender: FDA-Public Use
  Company Number: US-JNJFOC-20221020036

PATIENT
  Sex: Female

DRUGS (1)
  1. RIVAROXABAN [Suspect]
     Active Substance: RIVAROXABAN
     Indication: Product used for unknown indication
     Route: 048

REACTIONS (6)
  - Diabetes mellitus [Unknown]
  - Colonoscopy [Unknown]
  - Surgery [Unknown]
  - Viral infection [Unknown]
  - Memory impairment [Unknown]
  - Fatigue [Unknown]
